FAERS Safety Report 5487578-4 (Version None)
Quarter: 2007Q4

REPORT INFORMATION
  Report Type: 
  Country: None (occurrence: None)
  Receive Date: 20071015
  Receipt Date: 20070913
  Transmission Date: 20080405
  Serious: No
  Sender: FDA-Public Use
  Company Number: 200718833GDDC

PATIENT
  Age: 37 Year
  Sex: Female

DRUGS (1)
  1. LEFLUNOMIDE [Suspect]
     Indication: RHEUMATOID ARTHRITIS

REACTIONS (3)
  - DRUG EXPOSURE BEFORE PREGNANCY [None]
  - NO ADVERSE REACTION [None]
  - PREGNANCY [None]
